FAERS Safety Report 8306560-2 (Version None)
Quarter: 2012Q2

REPORT INFORMATION
  Report Type: 
  Country: None (occurrence: None)
  Receive Date: 20120420
  Receipt Date: 20120420
  Transmission Date: 20120825
  Serious: Yes (Hospitalization)
  Sender: FDA-Public Use
  Company Number: None

PATIENT
  Age: 60 Year
  Sex: Female
  Weight: 67.3 kg

DRUGS (6)
  1. PREMPRO [Concomitant]
  2. TEMSIROLIMUS [Suspect]
     Indication: MANTLE CELL LYMPHOMA
     Dosage: 25MG,WEEKLY,IV
     Route: 042
     Dates: start: 20110915, end: 20120403
  3. DOXYCYCLINE [Concomitant]
  4. VELCADE [Suspect]
     Indication: MANTLE CELL LYMPHOMA
     Dosage: 1.6MG/M2,WEEKLY,IV
     Route: 042
     Dates: start: 20110915, end: 20120403
  5. ACYCLOVIR [Concomitant]
  6. ZITHROMAX [Concomitant]

REACTIONS (3)
  - DYSPNOEA [None]
  - DIARRHOEA [None]
  - CARDIAC FAILURE CONGESTIVE [None]
